FAERS Safety Report 6704467-5 (Version None)
Quarter: 2010Q2

REPORT INFORMATION
  Report Type: 
  Country: None (occurrence: None)
  Receive Date: 20100430
  Receipt Date: 20100422
  Transmission Date: 20101027
  Serious: Yes (Life-Threatening, Hospitalization)
  Sender: FDA-Public Use
  Company Number: GXKR2010GB04553

PATIENT
  Age: 60 Year
  Sex: Female
  Weight: 60 kg

DRUGS (11)
  1. CEFTRIAXONE [Suspect]
     Indication: ARTHRITIS
     Dosage: UNK
     Route: 042
     Dates: start: 20100401
  2. CEFTRIAXONE [Suspect]
     Indication: CELLULITIS
  3. MEROPENEM [Suspect]
     Indication: ARTHRITIS
     Dosage: UNK
     Route: 042
     Dates: start: 20100403, end: 20100410
  4. MEROPENEM [Suspect]
     Indication: CELLULITIS
  5. BUMETANIDE [Concomitant]
     Route: 065
  6. HEPARIN [Concomitant]
     Route: 065
  7. METOLAZONE [Concomitant]
     Route: 065
  8. OMEPRAZOLE [Concomitant]
     Route: 065
  9. RAMIPRIL [Concomitant]
     Route: 065
  10. FLUTICASONE PROPIONATE W/SALMETEROL XINAFOATE [Concomitant]
  11. TIOTROPIUM BROMIDE [Concomitant]

REACTIONS (5)
  - ACUTE GENERALISED EXANTHEMATOUS PUSTULOSIS [None]
  - BLOOD PRESSURE DECREASED [None]
  - HYPERSENSITIVITY [None]
  - SKIN EXFOLIATION [None]
  - SKIN NECROSIS [None]
